FAERS Safety Report 9776950 (Version 1)
Quarter: 2013Q4

REPORT INFORMATION
  Report Type: Spontaneous
  Country: US (occurrence: US)
  Receive Date: 20131221
  Receipt Date: 20131221
  Transmission Date: 20140711
  Serious: Yes (Other)
  Sender: FDA-Public Use
  Company Number: 2013SP003986

PATIENT
  Age: 66 Year
  Sex: Female

DRUGS (3)
  1. VANCOMYCIN [Suspect]
     Indication: CLOSTRIDIUM DIFFICILE INFECTION
     Dates: start: 20130330, end: 20130408
  2. LINEZOLID [Suspect]
     Indication: URINARY TRACT INFECTION
     Dates: start: 20130404
  3. FIDAXOMICIN [Suspect]
     Indication: PRODUCT USED FOR UNKNOWN INDICATION
     Dates: start: 20130406

REACTIONS (2)
  - Clostridium difficile infection [Unknown]
  - Nausea [Recovered/Resolved]
